FAERS Safety Report 7782357-7 (Version None)
Quarter: 2011Q3

REPORT INFORMATION
  Report Type: 
  Country: None (occurrence: None)
  Receive Date: 20110927
  Receipt Date: 20110914
  Transmission Date: 20111222
  Serious: Yes (Hospitalization)
  Sender: FDA-Public Use
  Company Number: US-ELI_LILLY_AND_COMPANY-US201109004459

PATIENT
  Sex: Female

DRUGS (4)
  1. LISINOPRIL [Concomitant]
  2. GLUCOPHAGE [Concomitant]
  3. HUMULIN N [Suspect]
     Dosage: 10 U, EACH EVENING
     Dates: start: 20110101
  4. HUMULIN N [Suspect]
     Indication: DIABETES MELLITUS
     Dosage: 25 U, EACH MORNING
     Dates: start: 20110101

REACTIONS (3)
  - CEREBROVASCULAR ACCIDENT [None]
  - ASTHENIA [None]
  - GAIT DISTURBANCE [None]
